FAERS Safety Report 18191679 (Version 1)
Quarter: 2020Q3

REPORT INFORMATION
  Report Type: Other
  Country: ES (occurrence: ES)
  Receive Date: 20200825
  Receipt Date: 20200825
  Transmission Date: 20201103
  Serious: Yes (Hospitalization)
  Sender: FDA-Public Use
  Company Number: ES-CADILA HEALTHCARE LIMITED-ES-ZYDUS-054869

PATIENT

DRUGS (3)
  1. RIVOTRIL [Interacting]
     Active Substance: CLONAZEPAM
     Indication: SUICIDE ATTEMPT
     Dosage: 3.5 MILLIGRAM (7 CPS)
     Route: 048
     Dates: start: 20200331, end: 20200331
  2. DULOXETINE. [Suspect]
     Active Substance: DULOXETINE
     Indication: SUICIDE ATTEMPT
     Dosage: 1080 MILLIGRAM (90 MG, 12 CPS)
     Route: 048
     Dates: start: 20200331, end: 20200331
  3. LORAZEPAM. [Interacting]
     Active Substance: LORAZEPAM
     Indication: SUICIDE ATTEMPT
     Dosage: 10 MILLIGRAM (1 MG, 10 CPS)
     Route: 048
     Dates: start: 20200331, end: 20200331

REACTIONS (4)
  - Acute kidney injury [Recovered/Resolved]
  - Depressed level of consciousness [Recovered/Resolved]
  - Pneumonia aspiration [Recovered/Resolved]
  - Rhabdomyolysis [Recovered/Resolved]

NARRATIVE: CASE EVENT DATE: 20200331
